FAERS Safety Report 7793484-2 (Version None)
Quarter: 2011Q4

REPORT INFORMATION
  Report Type: 
  Country: None (occurrence: None)
  Receive Date: 20111003
  Receipt Date: 20110928
  Transmission Date: 20120403
  Serious: Yes (Life-Threatening, Hospitalization, Other)
  Sender: FDA-Public Use
  Company Number: PHHY2011JP70949

PATIENT
  Age: 73 Year
  Sex: Male

DRUGS (5)
  1. RASILEZ [Suspect]
     Indication: HYPERTENSION
     Dosage: 150 MG DAILY
     Route: 048
     Dates: start: 20110420
  2. FAMOTIDINE [Concomitant]
     Dosage: 10 MG, DAILY AFTER BREAKFAST
  3. CANDESARTAN CILEXETIL AND HYDROCHLOROTHIAZIDE [Suspect]
     Dosage: UNK UKN, UNK
     Route: 048
     Dates: start: 20100823
  4. CALBLOCK [Concomitant]
     Dosage: 16 MG, UNK
     Route: 048
     Dates: start: 20101021
  5. ANTIHYPERTENSIVES [Concomitant]

REACTIONS (3)
  - HEAT ILLNESS [None]
  - FALL [None]
  - DYSPNOEA [None]
